APPROVED DRUG PRODUCT: MEGESTROL ACETATE
Active Ingredient: MEGESTROL ACETATE
Strength: 40MG
Dosage Form/Route: TABLET;ORAL
Application: A072423 | Product #001 | TE Code: AB
Applicant: STRIDES PHARMA INTERNATIONAL AG
Approved: Aug 8, 1988 | RLD: No | RS: Yes | Type: RX